FAERS Safety Report 5821956-6 (Version None)
Quarter: 2008Q3

REPORT INFORMATION
  Report Type: 
  Country: None (occurrence: None)
  Receive Date: 20080724
  Receipt Date: 20080718
  Transmission Date: 20090109
  Serious: Yes (Hospitalization)
  Sender: FDA-Public Use
  Company Number: US-GENENTECH-262027

PATIENT
  Age: 52 Year
  Sex: Male

DRUGS (6)
  1. BEVACIZUMAB [Suspect]
     Indication: HEAD AND NECK CANCER
     Dosage: 15 MG/KG, Q3W
     Dates: start: 20080501
  2. BEVACIZUMAB [Suspect]
     Indication: TONSIL CANCER
  3. CISPLATIN [Suspect]
     Indication: HEAD AND NECK CANCER
     Dosage: 50 MG/M2, UNK
     Dates: start: 20080501
  4. CISPLATIN [Suspect]
     Indication: TONSIL CANCER
  5. RADIOTHERAPY [Concomitant]
     Indication: HEAD AND NECK CANCER
     Dates: start: 20080501
  6. RADIOTHERAPY [Concomitant]
     Indication: TONSIL CANCER

REACTIONS (2)
  - ATRIAL FIBRILLATION [None]
  - SYNCOPE [None]
